FAERS Safety Report 6077639-3 (Version None)
Quarter: 2009Q1

REPORT INFORMATION
  Report Type: 
  Country: None (occurrence: None)
  Receive Date: 20090213
  Receipt Date: 20090206
  Transmission Date: 20090719
  Serious: Yes (Hospitalization, Other)
  Sender: FDA-Public Use
  Company Number: US-ELI_LILLY_AND_COMPANY-US200902001743

PATIENT
  Sex: Female

DRUGS (15)
  1. BYETTA [Suspect]
     Indication: TYPE 2 DIABETES MELLITUS
     Dosage: 5 UG, UNK
     Route: 058
     Dates: end: 20090101
  2. COUMADIN [Concomitant]
     Dosage: 3 MG, UNK
  3. ASPIRIN [Concomitant]
     Dosage: 81 MG, UNK
  4. CIPRO [Concomitant]
     Dosage: UNK, 2/D
  5. LEVEMIR [Concomitant]
     Indication: TYPE 2 DIABETES MELLITUS
     Dosage: 35 U, EACH MORNING
  6. LEVEMIR [Concomitant]
     Dosage: 25 U, EACH EVENING
  7. NEXIUM [Concomitant]
     Dosage: 40 MG, UNK
  8. CALTRATE [Concomitant]
     Dosage: 600 MG, UNK
  9. CADUET [Concomitant]
     Indication: HYPERTENSION
  10. ALLOPURINOL [Concomitant]
     Indication: BLOOD URIC ACID
  11. SYNTHROID [Concomitant]
     Dosage: 50 MG, UNK
  12. ORAL ANTIDIABETICS [Concomitant]
     Indication: TYPE 2 DIABETES MELLITUS
     Dosage: 50 MG, DAILY (1/D)
  13. NEBIVOLOL [Concomitant]
     Indication: HYPERTENSION
  14. DARVOCET-N 100 [Concomitant]
  15. ASTELIN [Concomitant]
     Indication: HYPERSENSITIVITY
     Route: 045

REACTIONS (3)
  - BACK PAIN [None]
  - CHOLELITHIASIS [None]
  - PANCREATITIS [None]
